FAERS Safety Report 22179250 (Version 2)
Quarter: 2024Q1

REPORT INFORMATION
  Report Type: Other
  Country: US (occurrence: None)
  Receive Date: 20230406
  Receipt Date: 20240101
  Transmission Date: 20240410
  Serious: No
  Sender: FDA-Public Use
  Company Number: US-ROCHE-3323736

PATIENT
  Age: 55 Year
  Sex: Male
  Weight: 120.31 kg

DRUGS (6)
  1. OCREVUS [Suspect]
     Active Substance: OCRELIZUMAB
     Indication: Relapsing-remitting multiple sclerosis
     Dosage: THEN 600 MG EVERY 6 MONTH, DATE OF TREATMENT: 29/AUG/2022, 22/MAR/2023
     Route: 042
     Dates: start: 20220815
  2. SINGULAIR [Concomitant]
     Active Substance: MONTELUKAST SODIUM
  3. ADVAIR HFA [Concomitant]
     Active Substance: FLUTICASONE PROPIONATE\SALMETEROL XINAFOATE
  4. DOXYCYCLINE [Concomitant]
     Active Substance: DOXYCYCLINE
  5. TYSABRI [Concomitant]
     Active Substance: NATALIZUMAB
  6. VUMERITY [Concomitant]
     Active Substance: DIROXIMEL FUMARATE

REACTIONS (5)
  - Sinusitis [Recovered/Resolved]
  - Conjunctivitis [Recovered/Resolved]
  - Asthenopia [Not Recovered/Not Resolved]
  - JC polyomavirus test positive [Unknown]
  - Blood cholesterol increased [Unknown]

NARRATIVE: CASE EVENT DATE: 20230223
